FAERS Safety Report 5333920-4 (Version None)
Quarter: 2007Q2

REPORT INFORMATION
  Report Type: 
  Country: None (occurrence: None)
  Receive Date: 20070524
  Receipt Date: 20070515
  Transmission Date: 20071010
  Serious: Yes (Hospitalization)
  Sender: FDA-Public Use
  Company Number: AT-PFIZER INC-2006104015

PATIENT
  Sex: Male
  Weight: 64 kg

DRUGS (7)
  1. SUTENT [Suspect]
     Indication: RENAL CELL CARCINOMA STAGE UNSPECIFIED
     Route: 048
  2. CONCOR [Concomitant]
     Route: 048
  3. ALLOPURINOL [Concomitant]
     Route: 048
  4. LASIX [Concomitant]
     Route: 048
  5. PANTOPRAZOLE SODIUM [Concomitant]
     Route: 048
  6. ENALAPRIL [Concomitant]
     Route: 048
  7. SIMVASTATIN [Concomitant]
     Route: 048

REACTIONS (3)
  - HEPATOTOXICITY [None]
  - LEUKOPENIA [None]
  - THROMBOCYTOPENIA [None]
